FAERS Safety Report 8779008 (Version 4)
Quarter: 2012Q4

REPORT INFORMATION
  Report Type: Report from Study
  Country: IL (occurrence: IL)
  Receive Date: 20120912
  Receipt Date: 20121114
  Transmission Date: 20130627
  Serious: Yes (Death, Hospitalization)
  Sender: FDA-Public Use
  Company Number: IL-SANOFI-AVENTIS-2012SA063713

PATIENT
  Age: 62 Year
  Sex: Male
  Weight: 89 kg

DRUGS (10)
  1. CABAZITAXEL [Suspect]
     Indication: TRANSITIONAL CELL CARCINOMA
     Route: 042
     Dates: start: 20120821, end: 20120821
  2. GLUCOPHAGE [Suspect]
     Indication: DIABETES
     Route: 048
  3. ATORVASTATIN [Concomitant]
     Indication: HYPERLIPIDEMIA
     Route: 048
  4. NORMITEN [Concomitant]
     Indication: HYPERTENSION
     Route: 048
  5. AMLODIPINE BESILATE [Concomitant]
     Indication: HYPERTENSION
     Route: 048
  6. OMEPRADEX [Concomitant]
     Indication: HEARTBURN
     Route: 048
  7. GLUCO-RITE [Concomitant]
     Indication: DIABETES
     Route: 048
  8. TRIBEMIN [Concomitant]
     Route: 048
  9. TRITACE [Concomitant]
     Indication: HYPERTENSION
     Route: 048
  10. DISOTHIAZIDE [Concomitant]
     Indication: EDEMA
     Route: 048

REACTIONS (11)
  - Disease progression [Fatal]
  - Septic shock [Not Recovered/Not Resolved]
  - Metabolic acidosis [Recovered/Resolved]
  - Leukocytosis [Not Recovered/Not Resolved]
  - Renal failure acute [Recovered/Resolved]
  - Diarrhoea [Not Recovered/Not Resolved]
  - Dehydration [Recovered/Resolved]
  - Anaemia [Not Recovered/Not Resolved]
  - Asthenia [Not Recovered/Not Resolved]
  - Nausea [Not Recovered/Not Resolved]
  - Multi-organ failure [Not Recovered/Not Resolved]
